FAERS Safety Report 7425436-6 (Version None)
Quarter: 2011Q2

REPORT INFORMATION
  Report Type: 
  Country: None (occurrence: None)
  Receive Date: 20110414
  Receipt Date: 20110125
  Transmission Date: 20111010
  Serious: Yes (Hospitalization)
  Sender: FDA-Public Use
  Company Number: FR-2011-0215

PATIENT
  Age: 40 Year
  Sex: Female

DRUGS (5)
  1. FOLINATE DE CALCIUM AGUETTANT [Suspect]
     Indication: BREAST CANCER
     Dosage: 250 MG/M2 IV
     Route: 042
     Dates: start: 20100615, end: 20101109
  2. TAXOL [Suspect]
     Indication: BREAST CANCER
     Dosage: 140 MG/M2  IV
     Route: 042
     Dates: start: 20101109, end: 20101109
  3. ENDOXAN.  MFR: NOT SPECIFIED [Suspect]
     Indication: BREAST CANCER
     Dosage: 241 MG/M2 IV
     Route: 042
     Dates: start: 20100615, end: 20101109
  4. FLUOROURACIL [Suspect]
     Indication: BREAST CANCER
     Dosage: 422 MG/M2 IV
     Route: 042
     Dates: start: 20100615, end: 20101109
  5. NAVELBINE [Suspect]
     Indication: BREAST CANCER
     Dates: start: 20100615, end: 20101109

REACTIONS (5)
  - DRUG HYPERSENSITIVITY [None]
  - CHILLS [None]
  - BACK PAIN [None]
  - HYPOTENSION [None]
  - PYREXIA [None]
